FAERS Safety Report 7322809-7 (Version None)
Quarter: 2011Q1

REPORT INFORMATION
  Report Type: 
  Country: None (occurrence: None)
  Receive Date: 20110301
  Receipt Date: 20110217
  Transmission Date: 20110831
  Serious: Yes (Other)
  Sender: FDA-Public Use
  Company Number: NZ-JNJFOC-20110203764

PATIENT
  Age: 39 Year
  Sex: Female

DRUGS (2)
  1. SIBUTRAMINE HYDROCHLORIDE MONOHYDRATE [Concomitant]
     Route: 065
  2. TRAMADOL HYDROCHLORIDE [Suspect]
     Indication: INJURY
     Dosage: 200-400 MG DURATION 5 DAYS
     Route: 048

REACTIONS (9)
  - AUTONOMIC NERVOUS SYSTEM IMBALANCE [None]
  - COMA SCALE ABNORMAL [None]
  - HYPERREFLEXIA [None]
  - HYPERTONIA [None]
  - PALPITATIONS [None]
  - LETHARGY [None]
  - HYPERTENSION [None]
  - DYSPNOEA [None]
  - SEROTONIN SYNDROME [None]
